FAERS Safety Report 24014968 (Version 4)
Quarter: 2024Q3

REPORT INFORMATION
  Report Type: Spontaneous
  Country: CA (occurrence: CA)
  Receive Date: 20240626
  Receipt Date: 20240716
  Transmission Date: 20241017
  Serious: Yes (Other)
  Sender: PFIZER
  Company Number: CA-PFIZER INC-202400198628

PATIENT
  Age: 70 Year
  Sex: Female
  Weight: 47.5 kg

DRUGS (25)
  1. RUXIENCE [Suspect]
     Active Substance: RITUXIMAB-PVVR
     Indication: Rheumatoid arthritis
     Dosage: 1000 MG, DAY 1 AND DAY 15
     Route: 042
     Dates: start: 20240620, end: 20240620
  2. RUXIENCE [Suspect]
     Active Substance: RITUXIMAB-PVVR
     Dosage: 1000MG AFTER 3 WEEKS (1000MG, DAY 1 AND DAY 15)
     Route: 042
     Dates: start: 20240711
  3. ACETAMINOPHEN [Concomitant]
     Active Substance: ACETAMINOPHEN
     Indication: Premedication
     Dosage: UNK
     Dates: start: 20240620, end: 20240620
  4. FOLIC ACID [Concomitant]
     Active Substance: FOLIC ACID
     Dosage: UNK
  5. ADVAIR HFA [Concomitant]
     Active Substance: FLUTICASONE PROPIONATE\SALMETEROL XINAFOATE
     Dosage: UNK (ADVAIR 25 +250)
  6. BENADRYL [Concomitant]
     Active Substance: DIPHENHYDRAMINE HYDROCHLORIDE
     Indication: Premedication
     Dosage: UNK
     Dates: start: 20240620, end: 20240620
  7. CALCIUM [Concomitant]
     Active Substance: CALCIUM
     Dosage: UNK
  8. CETIRIZINE [Concomitant]
     Active Substance: CETIRIZINE HYDROCHLORIDE
     Dosage: UNK
  9. CHOLECALCIFEROL [Concomitant]
     Active Substance: CHOLECALCIFEROL
     Dosage: UNK
  10. FAMOTIDINE [Concomitant]
     Active Substance: FAMOTIDINE
     Dosage: UNK
  11. FLUCONAZOLE [Concomitant]
     Active Substance: FLUCONAZOLE
     Dosage: UNK
  12. OXYQUINOLINE [Concomitant]
     Active Substance: OXYQUINOLINE
     Dosage: UNK
  13. METHOTREXATE [Concomitant]
     Active Substance: METHOTREXATE
     Dosage: 1 DF, UNKNOWN
  14. METHOTREXATE SODIUM [Concomitant]
     Active Substance: METHOTREXATE SODIUM
     Dosage: UNK
  15. MOMETASONE [Concomitant]
     Active Substance: MOMETASONE
     Dosage: UNK (MOMETASONE NASAL)
  16. HERBALS [Concomitant]
     Active Substance: HERBALS
     Dosage: UNK (MYRTOL OPTION)
  17. NAPROXEN [Concomitant]
     Active Substance: NAPROXEN
     Dosage: UNK
  18. NOVO GESIC [Concomitant]
     Dosage: UNK
  19. NOVO PHENIRAM [Concomitant]
     Dosage: UNK
  20. OMNARIS [Concomitant]
     Active Substance: CICLESONIDE
     Dosage: UNK
  21. PANTOPRAZOLE [Concomitant]
     Active Substance: PANTOPRAZOLE
     Dosage: UNK
  22. PREDNISONE [Concomitant]
     Active Substance: PREDNISONE
     Dosage: UNK
  23. SOLU-MEDROL [Concomitant]
     Active Substance: METHYLPREDNISOLONE SODIUM SUCCINATE
     Indication: Premedication
     Dosage: UNK
     Dates: start: 20240620, end: 20240620
  24. FERROUS SULFATE [Concomitant]
     Active Substance: FERROUS SULFATE
     Dosage: UNK
  25. CYANOCOBALAMIN [Concomitant]
     Active Substance: CYANOCOBALAMIN
     Dosage: UNK

REACTIONS (17)
  - Throat irritation [Recovered/Resolved]
  - Pruritus [Unknown]
  - Nasal congestion [Recovering/Resolving]
  - Dysphonia [Unknown]
  - Cough [Recovered/Resolved]
  - Tremor [Recovered/Resolved]
  - Agitation [Recovered/Resolved]
  - Oral discomfort [Unknown]
  - Paraesthesia oral [Recovered/Resolved]
  - Anxiety [Recovered/Resolved]
  - Tachypnoea [Recovered/Resolved]
  - Urine output increased [Unknown]
  - Dysphagia [Recovering/Resolving]
  - Throat tightness [Recovering/Resolving]
  - Hypoaesthesia oral [Recovered/Resolved]
  - Pharyngeal paraesthesia [Recovered/Resolved]
  - Inappropriate schedule of product administration [Unknown]

NARRATIVE: CASE EVENT DATE: 20240620
